FAERS Safety Report 9239479 (Version 1)
Quarter: 2013Q2

REPORT INFORMATION
  Report Type: Report from Study
  Country: RO (occurrence: RO)
  Receive Date: 20130418
  Receipt Date: 20130418
  Transmission Date: 20140414
  Serious: Yes (Life-Threatening, Hospitalization)
  Sender: FDA-Public Use
  Company Number: RO-PFIZER INC-2013012980

PATIENT
  Age: 61 Year
  Sex: Female

DRUGS (2)
  1. METOPROLOL TARTRATE [Suspect]
     Dosage: UNK
     Route: 065
  2. AMIODARONE HCL [Interacting]
     Dosage: UNK

REACTIONS (2)
  - Drug interaction [Unknown]
  - Bradycardia [Unknown]
